FAERS Safety Report 16019170 (Version 3)
Quarter: 2019Q1

REPORT INFORMATION
  Report Type: Spontaneous
  Country: US (occurrence: US)
  Receive Date: 20190228
  Receipt Date: 20190326
  Transmission Date: 20190418
  Serious: Yes (Other)
  Sender: FDA-Public Use
  Company Number: US-SMITH AND NEPHEW, INC-2019SMT00017

PATIENT
  Age: 69 Year
  Sex: Male
  Weight: 89.34 kg

DRUGS (7)
  1. UNSPECIFIED MINERALS [Concomitant]
  2. UNSPECIFIED PAIN MEDICATIONS [Concomitant]
     Active Substance: UNSPECIFIED INGREDIENT
  3. COLLAGENASE SANTYL [Suspect]
     Active Substance: COLLAGENASE CLOSTRIDIUM HISTOLYTICUM
     Indication: WOUND
     Dosage: UNK
     Route: 061
     Dates: start: 201810, end: 201810
  4. UNSPECIFIED MEDICATIONS [Concomitant]
     Active Substance: UNSPECIFIED INGREDIENT
  5. COLLAGENASE SANTYL [Suspect]
     Active Substance: COLLAGENASE CLOSTRIDIUM HISTOLYTICUM
     Dosage: A HALF A TEASPOON TO A TEASPOON, 1-2 TIMES A DAY
     Route: 061
     Dates: end: 20190305
  6. COLLAGENASE SANTYL [Suspect]
     Active Substance: COLLAGENASE CLOSTRIDIUM HISTOLYTICUM
     Dosage: A HALF A TEASPOON TO A TEASPOON, 1-2 TIMES A DAY
     Route: 061
     Dates: start: 201810
  7. UNSPECIFIED VITAMINS [Concomitant]
     Active Substance: VITAMINS

REACTIONS (8)
  - Toe amputation [Recovered/Resolved with Sequelae]
  - Wound secretion [Not Recovered/Not Resolved]
  - Wound complication [Not Recovered/Not Resolved]
  - Off label use [Unknown]
  - Decubitus ulcer [Not Recovered/Not Resolved]
  - Impaired healing [Not Recovered/Not Resolved]
  - Skin disorder [Unknown]
  - Wound haemorrhage [Recovered/Resolved]

NARRATIVE: CASE EVENT DATE: 201810
